FAERS Safety Report 17605822 (Version 1)
Quarter: 2020Q1

REPORT INFORMATION
  Report Type: Other
  Country: GB (occurrence: GB)
  Receive Date: 20200331
  Receipt Date: 20200331
  Transmission Date: 20200409
  Serious: Yes (Other)
  Sender: FDA-Public Use
  Company Number: GB-ARBOR PHARMACEUTICALS, LLC-GB-2020ARB000261

PATIENT
  Age: 27 Year
  Sex: Female

DRUGS (3)
  1. TRIPTODUR [Suspect]
     Active Substance: TRIPTORELIN
     Indication: OFF LABEL USE
  2. TRIPTODUR [Suspect]
     Active Substance: TRIPTORELIN
     Indication: TRANSGENDER HORMONAL THERAPY
     Dosage: UNK
     Route: 051
     Dates: start: 20180419
  3. ESTRADIOL VALERATE. [Concomitant]
     Active Substance: ESTRADIOL VALERATE
     Indication: PRODUCT USED FOR UNKNOWN INDICATION
     Dosage: UNK

REACTIONS (4)
  - Anxiety [Not Recovered/Not Resolved]
  - Panic attack [Not Recovered/Not Resolved]
  - Off label use [Unknown]
  - Food interaction [Unknown]

NARRATIVE: CASE EVENT DATE: 20180419
